FAERS Safety Report 12092212 (Version 1)
Quarter: 2016Q1

REPORT INFORMATION
  Report Type: Spontaneous
  Country: US (occurrence: US)
  Receive Date: 20160219
  Receipt Date: 20160219
  Transmission Date: 20160526
  Serious: Yes (Other)
  Sender: FDA-Public Use
  Company Number: US-AMGEN-USASP2016019726

PATIENT
  Age: 63 Year
  Sex: Female

DRUGS (1)
  1. ENBREL [Suspect]
     Active Substance: ETANERCEPT
     Indication: RHEUMATOID ARTHRITIS
     Dosage: UNK UNK, QWK
     Route: 065
     Dates: start: 2012

REACTIONS (12)
  - Rheumatoid arthritis [Unknown]
  - Intentional product misuse [Unknown]
  - Oral disorder [Unknown]
  - Abdominal discomfort [Unknown]
  - Oral pain [Recovered/Resolved]
  - Gastrooesophageal reflux disease [Unknown]
  - Frustration tolerance decreased [Unknown]
  - Lip ulceration [Not Recovered/Not Resolved]
  - Gastrointestinal disorder [Unknown]
  - Adverse drug reaction [Unknown]
  - Discomfort [Unknown]
  - Oral discomfort [Recovered/Resolved]

NARRATIVE: CASE EVENT DATE: 2016
